FAERS Safety Report 19198800 (Version 2)
Quarter: 2021Q2

REPORT INFORMATION
  Report Type: Spontaneous
  Country: US (occurrence: US)
  Receive Date: 20210430
  Receipt Date: 20210519
  Transmission Date: 20210717
  Serious: Yes (Other)
  Sender: FDA-Public Use
  Company Number: US-SA-2021SA134817

PATIENT
  Age: 71 Year
  Sex: Male

DRUGS (11)
  1. PLAVIX [Suspect]
     Active Substance: CLOPIDOGREL BISULFATE
     Dosage: UNK
     Route: 065
     Dates: end: 20190811
  2. MIFEPRISTONE [Suspect]
     Active Substance: MIFEPRISTONE
     Indication: CUSHING^S SYNDROME
     Dosage: 300 MG, QD
     Dates: start: 20190725
  3. HYDROCHLOROTHIAZIDE. [Concomitant]
     Active Substance: HYDROCHLOROTHIAZIDE
  4. SPIRONOLACTON [Concomitant]
     Active Substance: SPIRONOLACTONE
  5. ASPRIN [Concomitant]
     Active Substance: ASPIRIN
     Dosage: UNK
     Route: 065
  6. PARACETAMOL [Concomitant]
     Active Substance: ACETAMINOPHEN
  7. ALLEGRA [Concomitant]
     Active Substance: FEXOFENADINE HYDROCHLORIDE
     Dosage: UNK
     Route: 065
  8. LABETALOL [Concomitant]
     Active Substance: LABETALOL\LABETALOL HYDROCHLORIDE
     Dosage: UNK
     Route: 065
  9. NIFEDIPINE. [Concomitant]
     Active Substance: NIFEDIPINE
     Dosage: UNK
     Route: 065
  10. PERCOCET [Concomitant]
     Active Substance: ACETAMINOPHEN\OXYCODONE HYDROCHLORIDE
     Dosage: UNK
     Route: 065
  11. HYDROXYUREA. [Concomitant]
     Active Substance: HYDROXYUREA

REACTIONS (22)
  - Sinusitis [Unknown]
  - Platelet count decreased [Unknown]
  - Decreased appetite [Unknown]
  - Fatigue [Unknown]
  - Malaise [Unknown]
  - Abdominal pain [Unknown]
  - Epistaxis [Recovered/Resolved]
  - Blood pressure increased [Recovered/Resolved]
  - Gastrointestinal haemorrhage [Unknown]
  - Haematochezia [Unknown]
  - Faeces discoloured [Unknown]
  - Blood potassium decreased [Unknown]
  - Anaemia [Unknown]
  - Pancreatic failure [Unknown]
  - Gastrointestinal polyp [Unknown]
  - Blood magnesium decreased [Unknown]
  - Blood pressure decreased [Unknown]
  - Mental impairment [Unknown]
  - Oral candidiasis [Unknown]
  - Asthenia [Unknown]
  - Weight decreased [Unknown]
  - Nausea [Recovering/Resolving]

NARRATIVE: CASE EVENT DATE: 20190809
